FAERS Safety Report 16138978 (Version 1)
Quarter: 2019Q2

REPORT INFORMATION
  Report Type: Other
  Country: GB (occurrence: GB)
  Receive Date: 20190401
  Receipt Date: 20190401
  Transmission Date: 20190711
  Serious: No
  Sender: FDA-Public Use
  Company Number: GB-LUPIN PHARMACEUTICALS INC.-2018-04062

PATIENT
  Sex: Female

DRUGS (1)
  1. SERTRALINE [Suspect]
     Active Substance: SERTRALINE HYDROCHLORIDE
     Indication: PRODUCT USED FOR UNKNOWN INDICATION
     Dosage: 50 MG, UNK (COLOURED BLUE)
     Route: 065

REACTIONS (5)
  - Feeling abnormal [Unknown]
  - Anxiety [Unknown]
  - Product substitution issue [Unknown]
  - Depression [Unknown]
  - Irritability [Unknown]
